FAERS Safety Report 7517707-X (Version None)
Quarter: 2011Q2

REPORT INFORMATION
  Report Type: 
  Country: None (occurrence: None)
  Receive Date: 20110602
  Receipt Date: 20110525
  Transmission Date: 20111010
  Serious: No
  Sender: FDA-Public Use
  Company Number: US-BIOGENIDEC-2010BI019865

PATIENT
  Age: 30 Year
  Sex: Female

DRUGS (1)
  1. TYSABRI [Suspect]
     Indication: MULTIPLE SCLEROSIS
     Route: 042
     Dates: start: 20061222

REACTIONS (13)
  - HYPERAESTHESIA [None]
  - HERPES ZOSTER [None]
  - NEURALGIA [None]
  - VISION BLURRED [None]
  - FEELING COLD [None]
  - FATIGUE [None]
  - SKIN DISCOLOURATION [None]
  - VISUAL IMPAIRMENT [None]
  - TEMPERATURE INTOLERANCE [None]
  - URTICARIA [None]
  - FOOD ALLERGY [None]
  - HEADACHE [None]
  - FLUSHING [None]
